FAERS Safety Report 13728031 (Version 1)
Quarter: 2017Q3

REPORT INFORMATION
  Report Type: Report from Study
  Country: US (occurrence: US)
  Receive Date: 20170707
  Receipt Date: 20170707
  Transmission Date: 20171127
  Serious: Yes (Hospitalization)
  Sender: FDA-Public Use
  Company Number: US-ROCHE-1959988

PATIENT
  Age: 79 Year
  Sex: Male

DRUGS (3)
  1. ESBRIET [Suspect]
     Active Substance: PIRFENIDONE
     Indication: IDIOPATHIC PULMONARY FIBROSIS
     Dosage: NO
     Route: 048
     Dates: start: 20170615, end: 20170629
  2. ESBRIET [Suspect]
     Active Substance: PIRFENIDONE
     Dosage: ONGOING:YES
     Route: 048
     Dates: start: 20170705
  3. ESBRIET [Suspect]
     Active Substance: PIRFENIDONE
     Dosage: NO
     Route: 048
     Dates: start: 20170629, end: 20170704

REACTIONS (2)
  - Fall [Unknown]
  - Fatigue [Not Recovered/Not Resolved]

NARRATIVE: CASE EVENT DATE: 20170629
